FAERS Safety Report 6376736-2 (Version None)
Quarter: 2009Q3

REPORT INFORMATION
  Report Type: 
  Country: None (occurrence: None)
  Receive Date: 20090921
  Receipt Date: 20090907
  Transmission Date: 20100115
  Serious: Yes (Disabling)
  Sender: FDA-Public Use
  Company Number: 001680

PATIENT

DRUGS (1)
  1. VIMPAT [Suspect]

REACTIONS (1)
  - DYSPHAGIA [None]
